FAERS Safety Report 6941560-6 (Version None)
Quarter: 2010Q3

REPORT INFORMATION
  Report Type: 
  Country: None (occurrence: None)
  Receive Date: 20100825
  Receipt Date: 20100813
  Transmission Date: 20110219
  Serious: Yes (Death)
  Sender: FDA-Public Use
  Company Number: IN-WATSON-2010-11337

PATIENT
  Age: 35 Year
  Sex: Female
  Weight: 42 kg

DRUGS (6)
  1. ATRACURIUM BESYLATE [Suspect]
     Indication: SURGERY
     Dosage: UNK
     Route: 042
  2. DOBUTAMINE HCL [Suspect]
     Indication: SURGERY
     Dosage: 5 UG/KG,/MIN
  3. DOPAMINE HCL [Suspect]
     Indication: SURGERY
     Dosage: 10 UG/KG,/MIN
     Route: 042
  4. EPINEPHRINE [Suspect]
     Indication: SURGERY
     Dosage: 0.05 UG/KG,/MIN
     Route: 042
  5. NOREPINEPHRINE BITARTRATE [Suspect]
     Indication: SURGERY
     Dosage: 0.05 UG/KG, /MIN
     Route: 042
  6. VASOPRESSIN [Suspect]
     Indication: SURGERY
     Dosage: 6 U/H

REACTIONS (3)
  - CARDIAC ARREST [None]
  - DRUG INEFFECTIVE [None]
  - DRUG INTERACTION [None]
